FAERS Safety Report 11562150 (Version 4)
Quarter: 2016Q2

REPORT INFORMATION
  Report Type: Report from Study
  Country: JP (occurrence: JP)
  Receive Date: 20150928
  Receipt Date: 20160620
  Transmission Date: 20160815
  Serious: Yes (Death, Hospitalization, Other)
  Sender: FDA-Public Use
  Company Number: PHJP2015JP015881

PATIENT
  Age: 66 Year
  Sex: Female

DRUGS (4)
  1. FARYDAK [Suspect]
     Active Substance: PANOBINOSTAT
     Indication: PLASMA CELL MYELOMA
     Dosage: 20 MG, QD
     Route: 048
     Dates: start: 20150904, end: 20150915
  2. BORTEZOMIB [Concomitant]
     Active Substance: BORTEZOMIB
     Indication: PLASMA CELL MYELOMA
     Dosage: 1.3 MG/M2, QW2
     Route: 058
  3. DECA//DEXAMETHASONE [Concomitant]
     Indication: PLASMA CELL MYELOMA
     Route: 065
  4. GRANISETRON [Concomitant]
     Active Substance: GRANISETRON
     Indication: PROPHYLAXIS
     Dosage: 1 MG, UNK
     Route: 048
     Dates: start: 20150910, end: 20150918

REACTIONS (19)
  - Plasma cell myeloma [Unknown]
  - Neutrophil percentage increased [Unknown]
  - Blood creatinine increased [Unknown]
  - Febrile neutropenia [Fatal]
  - Blood pressure decreased [Fatal]
  - Haemoglobin decreased [Unknown]
  - White blood cell count decreased [Unknown]
  - Aspartate aminotransferase increased [Unknown]
  - Supraventricular tachycardia [Recovering/Resolving]
  - Nausea [Unknown]
  - Disseminated intravascular coagulation [Fatal]
  - Platelet count decreased [Unknown]
  - Decreased appetite [Not Recovered/Not Resolved]
  - General physical health deterioration [Unknown]
  - Blood urea increased [Unknown]
  - Neutrophil count decreased [Recovering/Resolving]
  - Malignant neoplasm progression [Unknown]
  - Cardiac failure [Unknown]
  - Blood potassium decreased [Unknown]

NARRATIVE: CASE EVENT DATE: 20150907
